FAERS Safety Report 14874212 (Version 1)
Quarter: 2018Q2

REPORT INFORMATION
  Report Type: Spontaneous
  Country: US (occurrence: US)
  Receive Date: 20180510
  Receipt Date: 20180510
  Transmission Date: 20180711
  Serious: No
  Sender: FDA-Public Use
  Company Number: US-GLAXOSMITHKLINE-US2018076019

PATIENT
  Sex: Female

DRUGS (1)
  1. ABREVA [Suspect]
     Active Substance: DOCOSANOL
     Indication: HERPES SIMPLEX
     Dosage: UNK
     Route: 061

REACTIONS (4)
  - Application site pruritus [Unknown]
  - Application site pain [Unknown]
  - Application site inflammation [Unknown]
  - Off label use [Unknown]
